FAERS Safety Report 19785281 (Version 3)
Quarter: 2024Q2

REPORT INFORMATION
  Report Type: Spontaneous
  Country: GB (occurrence: GB)
  Receive Date: 20210903
  Receipt Date: 20240415
  Transmission Date: 20240716
  Serious: Yes (Hospitalization, Other)
  Sender: FDA-Public Use
  Company Number: GB-PFIZER INC-202101103328

PATIENT
  Age: 58 Year
  Sex: Female

DRUGS (8)
  1. CARBOPLATIN [Suspect]
     Active Substance: CARBOPLATIN
     Indication: HER2 positive breast cancer
     Dosage: UNK, EVERY 3 WEEKS (FOURTH CYCLE)
  2. DOCETAXEL [Suspect]
     Active Substance: DOCETAXEL\DOCETAXEL ANHYDROUS
     Indication: HER2 positive breast cancer
     Dosage: UNK, EVERY 3 WEEKS, FOURTH CYCLE
  3. TRASTUZUMAB [Suspect]
     Active Substance: TRASTUZUMAB
     Indication: HER2 positive breast cancer
     Dosage: UNK, CYCLIC, 12-18 MONTHS, STARTED 12 WEEKS PRIOR TO PRESENTATION, FOURTH CYCLE
  4. PERTUZUMAB [Suspect]
     Active Substance: PERTUZUMAB
     Indication: HER2 positive breast cancer
     Dosage: UNK, CYCLIC, 12-18 MONTHS, STARTED 12 WEEKS PRIOR TO PRESENTATION, FOURTH CYCLE
  5. AMITRIPTYLINE [Concomitant]
     Active Substance: AMITRIPTYLINE
     Indication: Analgesic therapy
     Dosage: 10 MG, ONCE NIGHTLY
  6. ACETAMINOPHEN [Concomitant]
     Active Substance: ACETAMINOPHEN
     Indication: Analgesic therapy
     Dosage: 1 G, 4X/DAY
  7. FILGRASTIM [Concomitant]
     Active Substance: FILGRASTIM
     Indication: Prophylaxis
     Dosage: UNK
  8. ALBUTEROL [Concomitant]
     Active Substance: ALBUTEROL
     Indication: Asthma
     Dosage: UNK, AS NEEDED
     Route: 055

REACTIONS (3)
  - Postural orthostatic tachycardia syndrome [Recovered/Resolved]
  - Nausea [Unknown]
  - Vomiting [Unknown]
